FAERS Safety Report 8011853-2 (Version None)
Quarter: 2011Q4

REPORT INFORMATION
  Report Type: 
  Country: None (occurrence: None)
  Receive Date: 20111228
  Receipt Date: 20111227
  Transmission Date: 20120403
  Serious: Yes (Other)
  Sender: FDA-Public Use
  Company Number: JP-EISAI INC-E2090-01924-SPO-JP

PATIENT
  Sex: Male

DRUGS (9)
  1. CABERGOLINE [Suspect]
     Indication: PARKINSON'S DISEASE
     Route: 048
     Dates: start: 20070514
  2. SYMMETREL [Concomitant]
     Indication: PARKINSON'S DISEASE
     Route: 048
     Dates: start: 20040817
  3. LOXONIN [Concomitant]
     Route: 048
     Dates: start: 20081021
  4. CLONAZEPAM [Concomitant]
     Route: 048
     Dates: start: 20071117
  5. ZONISAMIDE [Suspect]
     Indication: PARKINSON'S DISEASE
     Route: 048
     Dates: start: 20100804
  6. PLAVIX [Concomitant]
     Route: 048
     Dates: start: 20090602
  7. MADOPAR [Concomitant]
     Indication: PARKINSON'S DISEASE
     Route: 048
     Dates: start: 20070407
  8. MAGNESIUM SULFATE [Concomitant]
     Route: 048
     Dates: start: 20100201
  9. SELEGILINE HCL [Concomitant]
     Indication: PARKINSON'S DISEASE
     Route: 048
     Dates: start: 20050727

REACTIONS (2)
  - EMBOLIC STROKE [None]
  - CARDIAC VALVE DISEASE [None]
